FAERS Safety Report 11699784 (Version 1)
Quarter: 2015Q4

REPORT INFORMATION
  Report Type: Spontaneous
  Country: GB (occurrence: None)
  Receive Date: 20151103
  Receipt Date: 20151103
  Transmission Date: 20160304
  Serious: No
  Sender: FDA-Public Use
  Company Number: GB2015K6625SPO

PATIENT
  Age: 69 Year
  Sex: Male
  Weight: 80 kg

DRUGS (2)
  1. LANSOPRAZOLE GENERIC (LANSOPRAZOLE) UNKNOWN [Suspect]
     Active Substance: LANSOPRAZOLE
     Indication: OESOPHAGITIS
     Route: 048
     Dates: start: 200611
  2. GAVISCON ADVANCE (POTASSIUM BICARBONATE, SODIUM ALGINATE) [Concomitant]

REACTIONS (5)
  - Fatigue [None]
  - Anaemia vitamin B12 deficiency [None]
  - Barrett^s oesophagus [None]
  - Depression [None]
  - Neuropathy peripheral [None]

NARRATIVE: CASE EVENT DATE: 201009
